FAERS Safety Report 24829210 (Version 1)
Quarter: 2025Q1

REPORT INFORMATION
  Report Type: Spontaneous
  Country: FR (occurrence: FR)
  Receive Date: 20250110
  Receipt Date: 20250110
  Transmission Date: 20250409
  Serious: Yes (Other)
  Sender: ROCHE
  Company Number: None

PATIENT
  Age: 61 Year
  Sex: Male
  Weight: 69 kg

DRUGS (3)
  1. VALGANCICLOVIR [Suspect]
     Active Substance: VALGANCICLOVIR
     Indication: Antiviral prophylaxis
     Route: 048
     Dates: start: 20240524, end: 20241013
  2. GANCICLOVIR [Suspect]
     Active Substance: GANCICLOVIR
     Indication: Product used for unknown indication
     Route: 065
     Dates: start: 20240524, end: 20241014
  3. Maribavir (ATU) [Concomitant]
     Indication: Cytomegalovirus infection
     Route: 048
     Dates: start: 20241014

REACTIONS (2)
  - Cytomegalovirus infection reactivation [Recovered/Resolved]
  - Pathogen resistance [Recovered/Resolved]

NARRATIVE: CASE EVENT DATE: 20240719
